FAERS Safety Report 6147434-5 (Version None)
Quarter: 2009Q2

REPORT INFORMATION
  Report Type: 
  Country: None (occurrence: None)
  Receive Date: 20090408
  Receipt Date: 20090331
  Transmission Date: 20091009
  Serious: Yes (Other)
  Sender: FDA-Public Use
  Company Number: IT-ASTRAZENECA-2009SE01254

PATIENT
  Age: 31 Year
  Sex: Female

DRUGS (3)
  1. PROPOFOL [Suspect]
     Indication: ENDOCERVICAL CURETTAGE
     Route: 065
     Dates: start: 20090207, end: 20090207
  2. IPNOVEL [Suspect]
     Indication: ENDOCERVICAL CURETTAGE
     Route: 065
     Dates: start: 20090207, end: 20090207
  3. TORADOL [Suspect]
     Indication: ENDOCERVICAL CURETTAGE
     Route: 065
     Dates: start: 20090207, end: 20090207

REACTIONS (2)
  - HYPERSENSITIVITY [None]
  - HYPOTENSION [None]
